FAERS Safety Report 9505497 (Version 1)
Quarter: 2013Q1

REPORT INFORMATION
  Report Type: Spontaneous
  Country: US (occurrence: None)
  Receive Date: 20130220
  Receipt Date: 20130220
  Transmission Date: 20140127
  Serious: No
  Sender: FDA-Public Use
  Company Number: 1000040840

PATIENT
  Age: 48 Year
  Sex: Female

DRUGS (2)
  1. VIIBRYD (VILAZODONE HYDROCHLORIDE) (TABLETS) [Suspect]
     Indication: ANXIETY
     Dosage: 5 MG (5 MG, 1 IN 1 D), ORAL
     Route: 048
     Dates: start: 201204, end: 2012
  2. VITAMINS (NOS) (VITAMINS NOS) (VITAMINS NOS) [Concomitant]

REACTIONS (7)
  - Weight increased [None]
  - Initial insomnia [None]
  - Medication error [None]
  - Nightmare [None]
  - Paraesthesia [None]
  - Hypoaesthesia [None]
  - Off label use [None]
